FAERS Safety Report 12062091 (Version 1)
Quarter: 2016Q1

REPORT INFORMATION
  Report Type: Spontaneous
  Country: US (occurrence: US)
  Receive Date: 20160210
  Receipt Date: 20160210
  Transmission Date: 20160526
  Serious: No
  Sender: FDA-Public Use
  Company Number: US-NOVOPROD-436316

PATIENT
  Age: 67 Year
  Sex: Female
  Weight: 104.31 kg

DRUGS (1)
  1. PRANDIN [Suspect]
     Active Substance: REPAGLINIDE
     Indication: PRODUCT USED FOR UNKNOWN INDICATION
     Dosage: 5 MG, AT EACH MEAL
     Route: 048

REACTIONS (8)
  - Hyperhidrosis [Unknown]
  - Tremor [Unknown]
  - Irritability [Unknown]
  - Depression [Unknown]
  - Nausea [Unknown]
  - Blood glucose increased [Unknown]
  - Insomnia [Unknown]
  - Dehydration [Unknown]
